FAERS Safety Report 24670042 (Version 1)
Quarter: 2024Q4

REPORT INFORMATION
  Report Type: Report from Study
  Country: US (occurrence: US)
  Receive Date: 20241127
  Receipt Date: 20241127
  Transmission Date: 20250114
  Serious: Yes (Hospitalization)
  Sender: EISAI
  Company Number: US-Eisai-EC-2024-179586

PATIENT
  Age: 49 Year
  Sex: Female
  Weight: 70.27 kg

DRUGS (8)
  1. LENVIMA [Suspect]
     Active Substance: LENVATINIB
     Indication: Renal cancer
     Dosage: FIRST SHIPPED: AUG/30/2024
     Route: 048
     Dates: start: 20240831, end: 202409
  2. LENVIMA [Suspect]
     Active Substance: LENVATINIB
     Indication: Renal cell carcinoma
     Route: 048
     Dates: start: 202409, end: 202410
  3. LENVIMA [Suspect]
     Active Substance: LENVATINIB
     Route: 048
     Dates: start: 202410
  4. EVEROLIMUS [Concomitant]
     Active Substance: EVEROLIMUS
     Dosage: LAST SHIPPED: 08/30/2024
  5. CYMBALTA [Concomitant]
     Active Substance: DULOXETINE HYDROCHLORIDE
  6. OXYCODONE [Concomitant]
     Active Substance: OXYCODONE
  7. RITALIN [Concomitant]
     Active Substance: METHYLPHENIDATE HYDROCHLORIDE
  8. KEYTRUDA [Concomitant]
     Active Substance: PEMBROLIZUMAB
     Dosage: DOSE AND FREQUENCY
     Route: 042
     Dates: end: 202409

REACTIONS (9)
  - Weight decreased [Recovering/Resolving]
  - Hypophagia [Recovering/Resolving]
  - Heart rate increased [Recovering/Resolving]
  - Blood phosphorus increased [Recovering/Resolving]
  - Malignant neoplasm progression [Recovering/Resolving]
  - Pneumonia [Recovering/Resolving]
  - Asthenia [Recovering/Resolving]
  - Dehydration [Recovering/Resolving]
  - Malnutrition [Recovering/Resolving]

NARRATIVE: CASE EVENT DATE: 20241101
